FAERS Safety Report 5375557-7 (Version None)
Quarter: 2007Q2

REPORT INFORMATION
  Report Type: 
  Country: None (occurrence: None)
  Receive Date: 20070627
  Receipt Date: 20070611
  Transmission Date: 20071010
  Serious: Yes (Life-Threatening, Hospitalization)
  Sender: FDA-Public Use
  Company Number: DSA_30103_2007

PATIENT
  Age: 39 Year
  Sex: Female

DRUGS (3)
  1. TAVOR /00273201/ (TAVOR) [Suspect]
     Dosage: (ORAL)
     Route: 048
     Dates: start: 20070601, end: 20070601
  2. APONAL (APONAL) [Suspect]
     Dosage: (ORAL)
     Route: 048
     Dates: start: 20070601, end: 20070601
  3. JATROSOM (JATROSOM) 10 MG [Suspect]
     Dosage: (100 MG 1X ORAL)
     Route: 048
     Dates: start: 20070601, end: 20070601

REACTIONS (7)
  - BOWEL SOUNDS ABNORMAL [None]
  - HYPERHIDROSIS [None]
  - MULTIPLE DRUG OVERDOSE [None]
  - MYDRIASIS [None]
  - SOMNOLENCE [None]
  - SUICIDE ATTEMPT [None]
  - TACHYCARDIA [None]
